FAERS Safety Report 13153701 (Version 1)
Quarter: 2017Q1

REPORT INFORMATION
  Report Type: Spontaneous
  Country: US (occurrence: US)
  Receive Date: 20170124
  Receipt Date: 20170124
  Transmission Date: 20170428
  Serious: Yes (Hospitalization)
  Sender: FDA-Public Use
  Company Number: None

PATIENT
  Sex: Male

DRUGS (1)
  1. IMATINIB UNKNOWN [Suspect]
     Active Substance: IMATINIB
     Indication: GASTROINTESTINAL STROMAL CANCER
     Route: 048

REACTIONS (1)
  - Hospitalisation [None]
